FAERS Safety Report 14560434 (Version 1)
Quarter: 2018Q1

REPORT INFORMATION
  Report Type: Report from Study
  Country: None (occurrence: IT)
  Receive Date: 20180222
  Receipt Date: 20180222
  Transmission Date: 20180509
  Serious: Yes (Hospitalization)
  Sender: FDA-Public Use
  Company Number: IT-ABBVIE-18K-083-2263147-00

PATIENT
  Age: 69 Year
  Sex: Female

DRUGS (1)
  1. DUODOPA [Suspect]
     Active Substance: CARBIDOPA\LEVODOPA
     Indication: PARKINSON^S DISEASE
     Dosage: MD 1+3, CR 3,2, ED 2
     Route: 050
     Dates: start: 20180206

REACTIONS (3)
  - Gastric ulcer [Unknown]
  - Duodenal obstruction [Unknown]
  - Device dislocation [Unknown]

NARRATIVE: CASE EVENT DATE: 20180219
